FAERS Safety Report 10977603 (Version 1)
Quarter: 2015Q1

REPORT INFORMATION
  Report Type: Spontaneous
  Country: US (occurrence: None)
  Receive Date: 20150330
  Receipt Date: 20150330
  Transmission Date: 20150721
  Serious: Yes (Other)
  Sender: FDA-Public Use
  Company Number: INT_00725_2015

PATIENT
  Age: 23 Year
  Sex: Female

DRUGS (3)
  1. BLEOMYCIN [Concomitant]
     Active Substance: BLEOMYCIN SULFATE
  2. ETOPOSIDE. [Concomitant]
     Active Substance: ETOPOSIDE
  3. CISPLATIN (HQ SPECIALTY) [Suspect]
     Active Substance: CISPLATIN
     Indication: OVARIAN SERTOLI-LEYDIG CELL TUMOUR
     Dosage: 5 DAY CYCLE; DAY 5 OF CYCLE 1 WAS HELD, 5 DAY CYCLE, 5 DAY CYCLE; DAY 5 OF CYCLE 3 WAS HELD

REACTIONS (10)
  - Rebound effect [None]
  - Bradycardia [None]
  - Electrocardiogram QT interval abnormal [None]
  - Hypertension [None]
  - Nausea [None]
  - Malaise [None]
  - Dizziness [None]
  - Presyncope [None]
  - Asthenia [None]
  - Dehydration [None]
